FAERS Safety Report 4663612-6 (Version None)
Quarter: 2005Q2

REPORT INFORMATION
  Report Type: 
  Country: None (occurrence: None)
  Receive Date: 20050517
  Receipt Date: 20050419
  Transmission Date: 20051028
  Serious: Yes (Other)
  Sender: FDA-Public Use
  Company Number: AU-GLAXOSMITHKLINE-B0378516A

PATIENT
  Age: 35 Year
  Sex: Male

DRUGS (1)
  1. NICABATE CQ CLEAR 21MG [Suspect]
     Indication: SMOKING CESSATION THERAPY
     Dosage: 21MG PER DAY
     Route: 062
     Dates: start: 20050414, end: 20050414

REACTIONS (6)
  - BACK PAIN [None]
  - BONE PAIN [None]
  - HYPERHIDROSIS [None]
  - MUSCULOSKELETAL PAIN [None]
  - PALPITATIONS [None]
  - RASH GENERALISED [None]
